FAERS Safety Report 24698464 (Version 2)
Quarter: 2024Q4

REPORT INFORMATION
  Report Type: Report from Study
  Country: BE (occurrence: BE)
  Receive Date: 20241204
  Receipt Date: 20241207
  Transmission Date: 20250114
  Serious: Yes (Hospitalization)
  Sender: ABBVIE
  Company Number: BE-ABBVIE-6029151

PATIENT
  Age: 72 Year
  Sex: Male

DRUGS (3)
  1. CARBIDOPA\LEVODOPA [Suspect]
     Active Substance: CARBIDOPA\LEVODOPA
     Indication: Parkinson^s disease
     Dosage: MD: 11 ML, AD: 3 ML, CD: 5.1 ML/H, ED: 1.50 ML, REMAINS AT 16 HR
     Route: 050
     Dates: start: 20241129
  2. CARBIDOPA\LEVODOPA [Suspect]
     Active Substance: CARBIDOPA\LEVODOPA
     Dosage: END DATE NOV 2024
     Route: 050
     Dates: start: 20241120
  3. CARBIDOPA\LEVODOPA [Suspect]
     Active Substance: CARBIDOPA\LEVODOPA
     Dosage: MD: 10.8 ML, AD: 3 ML, CD: 4.9 ML/H, ED: 2 ML, REMAINS AT 16 DAY PUMP ADDITIONAL TUBE FILING 3ML
     Route: 050
     Dates: start: 20241126, end: 20241128

REACTIONS (11)
  - Motor dysfunction [Unknown]
  - Stoma site infection [Unknown]
  - Muscle rigidity [Unknown]
  - Freezing phenomenon [Not Recovered/Not Resolved]
  - Gait disturbance [Unknown]
  - Speech disorder [Unknown]
  - Bradykinesia [Not Recovered/Not Resolved]
  - Stoma site odour [Unknown]
  - Unevaluable event [Unknown]
  - Stoma site discharge [Unknown]
  - Mobility decreased [Not Recovered/Not Resolved]

NARRATIVE: CASE EVENT DATE: 20240101
